FAERS Safety Report 16772543 (Version 1)
Quarter: 2019Q4

REPORT INFORMATION
  Report Type: Spontaneous
  Country: US (occurrence: US)
  Receive Date: 20190904
  Receipt Date: 20190904
  Transmission Date: 20200122
  Serious: Yes (Hospitalization)
  Sender: FDA-Public Use
  Company Number: None

PATIENT
  Age: 80 Year
  Sex: Male

DRUGS (3)
  1. SPRYCEL [Suspect]
     Active Substance: DASATINIB
     Indication: CHRONIC MYELOID LEUKAEMIA
     Route: 048
     Dates: start: 20190625
  2. BUDESONIDE. [Concomitant]
     Active Substance: BUDESONIDE
  3. TUMS EX [Concomitant]
     Active Substance: CALCIUM CARBONATE

REACTIONS (3)
  - Oropharyngeal pain [None]
  - Dysphagia [None]
  - Pharyngeal swelling [None]
